FAERS Safety Report 8999017 (Version 3)
Quarter: 2013Q1

REPORT INFORMATION
  Report Type: Report from Study
  Country: AU (occurrence: AU)
  Receive Date: 20130103
  Receipt Date: 20130213
  Transmission Date: 20140127
  Serious: Yes (Other)
  Sender: FDA-Public Use
  Company Number: PHHY2013AU000973

PATIENT
  Age: 20 Year
  Sex: Female

DRUGS (2)
  1. CLOZARIL [Suspect]
     Route: 048
     Dates: start: 20071004, end: 20121226
  2. AMISULPRIDE [Concomitant]
     Indication: SCHIZOPHRENIA
     Dosage: 100 MG IN MORNING AND 200 MG IN EVENING
     Route: 065

REACTIONS (17)
  - Petroleum distillate poisoning [Unknown]
  - Urinary tract infection [Unknown]
  - Pyrexia [Unknown]
  - Leukocyturia [Unknown]
  - Infection [Unknown]
  - Pericardial effusion [Unknown]
  - Tricuspid valve incompetence [Unknown]
  - Myopericarditis [Unknown]
  - Hepatitis acute [Unknown]
  - Decreased appetite [Unknown]
  - Abdominal discomfort [Unknown]
  - Vomiting [Unknown]
  - Fatigue [Unknown]
  - Neutropenia [Recovering/Resolving]
  - Leukopenia [Recovering/Resolving]
  - Dizziness [Unknown]
  - Tachycardia [Unknown]
